FAERS Safety Report 25253907 (Version 3)
Quarter: 2025Q2

REPORT INFORMATION
  Report Type: Report from Study
  Country: IL (occurrence: IL)
  Receive Date: 20250430
  Receipt Date: 20250611
  Transmission Date: 20250716
  Serious: Yes (Hospitalization, Other)
  Sender: ABBVIE
  Company Number: IL-ABBVIE-6255536

PATIENT
  Age: 79 Year
  Sex: Female

DRUGS (4)
  1. FOSCARBIDOPA\FOSLEVODOPA [Suspect]
     Active Substance: FOSCARBIDOPA\FOSLEVODOPA
     Indication: Parkinson^s disease
     Route: 058
  2. FOSCARBIDOPA\FOSLEVODOPA [Suspect]
     Active Substance: FOSCARBIDOPA\FOSLEVODOPA
     Route: 058
     Dates: start: 20241103
  3. CIPRALEX [Concomitant]
     Active Substance: ESCITALOPRAM OXALATE
     Indication: Product used for unknown indication
     Dates: start: 20250209
  4. Clonex [Concomitant]
     Indication: Product used for unknown indication
     Dates: start: 20250209

REACTIONS (8)
  - Femoral neck fracture [Unknown]
  - Fall [Unknown]
  - Injection site infection [Unknown]
  - Injection site haemorrhage [Unknown]
  - Musculoskeletal pain [Unknown]
  - Pelvic fracture [Recovered/Resolved]
  - Injection site pain [Unknown]
  - On and off phenomenon [Unknown]

NARRATIVE: CASE EVENT DATE: 20250101
